FAERS Safety Report 16905507 (Version 1)
Quarter: 2019Q4

REPORT INFORMATION
  Report Type: Spontaneous
  Country: CA (occurrence: CA)
  Receive Date: 20191010
  Receipt Date: 20191010
  Transmission Date: 20200122
  Serious: Yes (Death)
  Sender: FDA-Public Use
  Company Number: CA-CIPHER-2019-CA-002796

PATIENT
  Age: 86 Year
  Sex: Male

DRUGS (1)
  1. TRAMADOL HYDROCHLORIDE. [Suspect]
     Active Substance: TRAMADOL HYDROCHLORIDE

REACTIONS (7)
  - Multiple injuries [Fatal]
  - Pulse absent [Fatal]
  - Toxicologic test [Fatal]
  - Hallucination [Fatal]
  - Multiple fractures [Fatal]
  - Sleep terror [Fatal]
  - Fall [Fatal]
